FAERS Safety Report 9897678 (Version 5)
Quarter: 2014Q1

REPORT INFORMATION
  Report Type: Report from Study
  Country: US (occurrence: US)
  Receive Date: 20140214
  Receipt Date: 20140228
  Transmission Date: 20141002
  Serious: Yes (Hospitalization)
  Sender: FDA-Public Use
  Company Number: US-ACTELION-A-US2014-93692

PATIENT
  Age: 67 Year
  Sex: Female

DRUGS (2)
  1. VENTAVIS [Suspect]
     Indication: PULMONARY ARTERIAL HYPERTENSION
     Dosage: 2.5 MCG, 5X DAILY
     Route: 055
     Dates: start: 20140110
  2. SILDENAFIL [Concomitant]

REACTIONS (8)
  - Anaemia [Recovered/Resolved]
  - Transfusion [Recovered/Resolved]
  - Blood potassium increased [Recovered/Resolved]
  - Hyperhidrosis [Recovered/Resolved]
  - Chest discomfort [Recovered/Resolved]
  - Dyspnoea [Recovered/Resolved]
  - Palpitations [Recovered/Resolved]
  - Asthenia [Unknown]
